FAERS Safety Report 8227356-6 (Version None)
Quarter: 2012Q1

REPORT INFORMATION
  Report Type: 
  Country: None (occurrence: None)
  Receive Date: 20120322
  Receipt Date: 20120314
  Transmission Date: 20120608
  Serious: Yes (Hospitalization, Other)
  Sender: FDA-Public Use
  Company Number: US-BAYER-201033319NA

PATIENT
  Age: 38 Year
  Sex: Female
  Weight: 73.923 kg

DRUGS (12)
  1. PROZAC [Concomitant]
     Dosage: 20 MG, UNK
     Dates: start: 20000101
  2. MOTRIN [Concomitant]
     Indication: HEADACHE
     Dosage: 200 MG, PRN
     Dates: start: 20090213
  3. YASMIN [Suspect]
     Indication: PRODUCT USED FOR UNKNOWN INDICATION
     Dosage: UNK
     Route: 048
     Dates: start: 20090214, end: 20090501
  4. CLONAZEPAM [Concomitant]
     Dosage: 5 MG, UNK
     Route: 048
     Dates: start: 20050101
  5. FERROUS SULFATE TAB [Concomitant]
     Dosage: 325 MG, TID
     Route: 048
     Dates: start: 20090303
  6. MULTI-VITAMINS [Concomitant]
     Dosage: UNK UNK, QD
     Route: 048
  7. IBUPROFEN (ADVIL) [Concomitant]
     Indication: HEADACHE
     Dosage: 200 MG, PRN
     Route: 048
  8. ETODOLAC [Concomitant]
     Dosage: 400 MG, BID
     Route: 048
     Dates: start: 20090213
  9. RANITIDINE [Concomitant]
     Dosage: 150 MG, BID
  10. FLEXERIL [Concomitant]
     Dosage: 10 MG, UNK
     Route: 048
     Dates: start: 20090213
  11. FLUOXETINE [Concomitant]
     Dosage: UNK UNK, QD
     Route: 048
  12. IRON [Concomitant]
     Dosage: UNK
     Dates: start: 20090317

REACTIONS (3)
  - THROMBOTIC STROKE [None]
  - MENTAL DISORDER [None]
  - SUPERIOR SAGITTAL SINUS THROMBOSIS [None]
